FAERS Safety Report 9925333 (Version 3)
Quarter: 2014Q2

REPORT INFORMATION
  Report Type: Spontaneous
  Country: US (occurrence: US)
  Receive Date: 20140226
  Receipt Date: 20140401
  Transmission Date: 20141212
  Serious: Yes (Other)
  Sender: FDA-Public Use
  Company Number: US-GLAXOSMITHKLINE-A1058529A

PATIENT
  Age: 79 Year
  Sex: Male
  Weight: 58.2 kg

DRUGS (22)
  1. ARZERRA [Suspect]
     Indication: CHRONIC LYMPHOCYTIC LEUKAEMIA
     Dosage: 2000MG WEEKLY
     Route: 042
     Dates: start: 20140102
  2. CITALOPRAM [Concomitant]
  3. COZAAR [Concomitant]
  4. DILTIAZEM [Concomitant]
  5. HCTZ [Concomitant]
  6. ACYCLOVIR [Concomitant]
  7. METHYLPHENIDATE [Concomitant]
  8. ONDANSETRON [Concomitant]
  9. KETOCONAZOLE [Concomitant]
  10. POTASSIUM [Concomitant]
  11. ASPIRIN [Concomitant]
  12. B-12 [Concomitant]
  13. FINASTERIDE [Concomitant]
  14. MULTIVITAMIN [Concomitant]
  15. CIPROFLOXACIN [Concomitant]
  16. DIGOXIN [Concomitant]
  17. VITAMIN D [Concomitant]
  18. BENADRYL [Concomitant]
     Indication: PREMEDICATION
     Dates: start: 20140102
  19. STEROID [Concomitant]
     Indication: PREMEDICATION
     Dates: start: 20140102
  20. FAMCICLOVIR [Concomitant]
  21. PREDNISONE [Concomitant]
  22. POTASSIUM CHLORIDE [Concomitant]

REACTIONS (9)
  - Lower respiratory tract infection [Recovering/Resolving]
  - Haematocrit increased [Recovering/Resolving]
  - Haemoglobin increased [Recovering/Resolving]
  - Platelet count increased [Recovering/Resolving]
  - Lymphocyte count increased [Recovering/Resolving]
  - Lymphocyte percentage decreased [Recovering/Resolving]
  - White blood cell count increased [Recovering/Resolving]
  - Cold-stimulus headache [Recovering/Resolving]
  - Drug ineffective [Unknown]
